FAERS Safety Report 10718438 (Version 3)
Quarter: 2015Q2

REPORT INFORMATION
  Report Type: Spontaneous
  Country: US (occurrence: US)
  Receive Date: 20150119
  Receipt Date: 20150402
  Transmission Date: 20150821
  Serious: Yes (Other)
  Sender: FDA-Public Use
  Company Number: US-PFIZER INC-2015014871

PATIENT
  Age: 55 Year
  Sex: Female
  Weight: 113 kg

DRUGS (6)
  1. AUGMENTIN [Interacting]
     Active Substance: AMOXICILLIN\CLAVULANATE POTASSIUM
     Dosage: UNK
     Dates: start: 20131025
  2. BOSUTINIB [Suspect]
     Active Substance: BOSUTINIB
     Indication: CHRONIC MYELOID LEUKAEMIA
     Dosage: 400 MG, 1X/DAY
     Route: 048
     Dates: start: 20130507, end: 201309
  3. BOSUTINIB [Interacting]
     Active Substance: BOSUTINIB
     Dosage: 200 MG, 1X/DAY
     Route: 048
     Dates: start: 201309, end: 20131104
  4. LEVOTHYROXINE [Concomitant]
     Active Substance: LEVOTHYROXINE
     Dosage: 125 ?G, 1X/DAY
  5. HYTRIN [Suspect]
     Active Substance: TERAZOSIN HYDROCHLORIDE
     Indication: RASH
     Dosage: UNK
  6. AUGMENTIN [Interacting]
     Active Substance: AMOXICILLIN\CLAVULANATE POTASSIUM
     Indication: SINUSITIS
     Dosage: UNK UNK, 2X/DAY
     Dates: start: 20130923

REACTIONS (12)
  - Fatigue [Unknown]
  - Drug interaction [Unknown]
  - Dyspnoea [Recovered/Resolved]
  - Nausea [Recovered/Resolved]
  - Abdominal distension [Recovered/Resolved]
  - Pulmonary oedema [Recovered/Resolved]
  - Weight increased [Unknown]
  - Sinusitis [Unknown]
  - Pleural effusion [Recovered/Resolved]
  - Arthralgia [Unknown]
  - Pain [Unknown]
  - Headache [Recovered/Resolved]

NARRATIVE: CASE EVENT DATE: 201309
